FAERS Safety Report 20704884 (Version 2)
Quarter: 2022Q2

REPORT INFORMATION
  Report Type: Spontaneous
  Country: BR (occurrence: BR)
  Receive Date: 20220413
  Receipt Date: 20220616
  Transmission Date: 20220720
  Serious: Yes (Other)
  Sender: FDA-Public Use
  Company Number: BR-NOVARTISPH-NVSC2022BR081615

PATIENT
  Sex: Female

DRUGS (1)
  1. COSENTYX [Suspect]
     Active Substance: SECUKINUMAB
     Indication: Spondyloarthropathy
     Dosage: UNK
     Route: 065

REACTIONS (2)
  - Eosinophilic colitis [Unknown]
  - Product use in unapproved indication [Unknown]
